FAERS Safety Report 19054913 (Version 2)
Quarter: 2022Q4

REPORT INFORMATION
  Report Type: Spontaneous
  Country: CA (occurrence: CA)
  Receive Date: 20210325
  Receipt Date: 20221221
  Transmission Date: 20230112
  Serious: Yes (Disabling)
  Sender: FDA-Public Use
  Company Number: CA-ORGANON-O2103CAN002401

PATIENT
  Sex: Male

DRUGS (1)
  1. EZETIMIBE [Suspect]
     Active Substance: EZETIMIBE
     Indication: Hypercholesterolaemia
     Dosage: 10 MILLIGRAM
     Route: 048

REACTIONS (3)
  - Blood creatine phosphokinase increased [Unknown]
  - Gait inability [Unknown]
  - Myalgia [Unknown]
